FAERS Safety Report 8831809 (Version 1)
Quarter: 2012Q4

REPORT INFORMATION
  Report Type: 
  Country: JP (occurrence: JP)
  Receive Date: 20121008
  Receipt Date: 20121008
  Transmission Date: 20130627
  Serious: Yes (Other)
  Sender: FDA-Public Use
  Company Number: JP-PFIZER INC-JP-WYE-H14182610

PATIENT
  Age: 53 Year
  Sex: Male

DRUGS (6)
  1. ZOSYN [Suspect]
     Indication: ARTERIOVENOUS GRAFT SITE INFECTION
     Dosage: 2.25 g, 2x/day
     Route: 042
     Dates: start: 20090106, end: 20090113
  2. AMPICILLIN [Concomitant]
     Dosage: UNK
     Route: 042
     Dates: start: 20090105, end: 20090105
  3. CEFOTIAM [Concomitant]
     Dosage: UNK
     Route: 042
     Dates: start: 20081224, end: 20081228
  4. CEFTRIAXONE SODIUM [Concomitant]
     Dosage: UNK
     Route: 042
     Dates: start: 20081221, end: 20081223
  5. CIPROFLOXACIN [Concomitant]
     Dosage: UNK
     Route: 042
     Dates: start: 20081229, end: 20090104
  6. VANCOMYCIN [Concomitant]
     Dosage: UNK
     Route: 042
     Dates: start: 20090107, end: 20090110

REACTIONS (3)
  - Pneumonia staphylococcal [Recovered/Resolved]
  - Clostridium difficile colitis [Recovered/Resolved]
  - Pyrexia [Recovered/Resolved]
